FAERS Safety Report 4382213-0 (Version None)
Quarter: 2004Q2

REPORT INFORMATION
  Report Type: 
  Country: None (occurrence: None)
  Receive Date: 20040618
  Receipt Date: 20040618
  Transmission Date: 20050107
  Serious: Yes (Hospitalization)
  Sender: FDA-Public Use
  Company Number: None

PATIENT
  Age: 53 Year
  Sex: Male
  Weight: 108.9 kg

DRUGS (7)
  1. EPTIFIBATIDE (INTEGRILIN (R)) [Suspect]
     Indication: ANTIPLATELET THERAPY
     Dosage: 2(10.2ML BOLUSES)18ML/HR IV
     Route: 040
     Dates: start: 20040603, end: 20040604
  2. MIDAZOLAM HCL [Concomitant]
  3. FENTANYL [Concomitant]
  4. CEFAZOLIN [Concomitant]
  5. ASPIRIN [Concomitant]
  6. CLOPIDOGREL BISULFATE [Concomitant]
  7. PEPCID [Concomitant]

REACTIONS (2)
  - POST PROCEDURAL HAEMATOMA [None]
  - POST PROCEDURAL PAIN [None]
